FAERS Safety Report 24760007 (Version 5)
Quarter: 2025Q3

REPORT INFORMATION
  Report Type: Spontaneous
  Country: EU (occurrence: EU)
  Receive Date: 20241220
  Receipt Date: 20250904
  Transmission Date: 20251021
  Serious: Yes (Hospitalization, Other)
  Sender: GALPHARM INTERNATIONAL
  Company Number: None

PATIENT
  Age: 36 Year
  Sex: Female

DRUGS (40)
  1. DICLOFENAC [Suspect]
     Active Substance: DICLOFENAC
     Indication: Toothache
     Route: 048
  2. DICLOFENAC [Suspect]
     Active Substance: DICLOFENAC
     Route: 061
  3. ACETAMINOPHEN\CODEINE PHOSPHATE [Suspect]
     Active Substance: ACETAMINOPHEN\CODEINE PHOSPHATE
     Indication: Toothache
     Route: 065
  4. DOXYLAMINE [Interacting]
     Active Substance: DOXYLAMINE
     Indication: Insomnia
     Dosage: 25 MILLIGRAM, DAILY, AT NIGHT
     Route: 065
  5. DOXYLAMINE [Interacting]
     Active Substance: DOXYLAMINE
     Indication: Sleep disorder
     Dosage: 25 MG AT NIGHT
     Route: 065
  6. DOXYLAMINE [Interacting]
     Active Substance: DOXYLAMINE
     Indication: Depression
  7. ESCITALOPRAM [Interacting]
     Active Substance: ESCITALOPRAM OXALATE
     Indication: Depression
     Dosage: 10 MG AT NIGHT
     Route: 065
  8. ESCITALOPRAM [Interacting]
     Active Substance: ESCITALOPRAM OXALATE
     Indication: Insomnia
     Dosage: 10 MG AT NIGHT
     Route: 065
  9. IBUPROFEN [Suspect]
     Active Substance: IBUPROFEN
     Indication: Toothache
     Route: 065
  10. BUPRENORPHINE [Suspect]
     Active Substance: BUPRENORPHINE
     Indication: Toothache
     Route: 003
  11. BUPRENORPHINE [Suspect]
     Active Substance: BUPRENORPHINE
     Route: 003
  12. BUPRENORPHINE [Suspect]
     Active Substance: BUPRENORPHINE
     Route: 062
  13. BUPRENORPHINE [Suspect]
     Active Substance: BUPRENORPHINE
     Route: 065
  14. DIAZEPAM [Suspect]
     Active Substance: DIAZEPAM
     Indication: Toothache
     Route: 065
  15. AMOXICILLIN [Suspect]
     Active Substance: AMOXICILLIN
     Indication: Toothache
     Route: 065
  16. CLINDAMYCIN [Suspect]
     Active Substance: CLINDAMYCIN
     Indication: Toothache
     Route: 065
  17. BENZYDAMINE [Suspect]
     Active Substance: BENZYDAMINE
     Indication: Toothache
     Route: 061
  18. BENZYDAMINE [Suspect]
     Active Substance: BENZYDAMINE
     Route: 061
  19. FLURBIPROFEN [Suspect]
     Active Substance: FLURBIPROFEN
     Indication: Toothache
     Route: 061
  20. FLURBIPROFEN [Suspect]
     Active Substance: FLURBIPROFEN
     Route: 061
  21. CHLORHEXIDINE [Suspect]
     Active Substance: CHLORHEXIDINE
     Indication: Toothache
     Route: 061
  22. CHLORHEXIDINE [Suspect]
     Active Substance: CHLORHEXIDINE
     Route: 061
  23. LIDOCAINE [Suspect]
     Active Substance: LIDOCAINE
     Indication: Toothache
     Route: 061
  24. MORPHINE [Suspect]
     Active Substance: MORPHINE
     Indication: Toothache
     Route: 061
  25. MORPHINE [Suspect]
     Active Substance: MORPHINE
     Route: 061
  26. ACETAMINOPHEN [Suspect]
     Active Substance: ACETAMINOPHEN
     Indication: Toothache
     Route: 065
  27. ACETAMINOPHEN [Suspect]
     Active Substance: ACETAMINOPHEN
     Indication: Gingival pain
  28. DULOXETINE [Suspect]
     Active Substance: DULOXETINE
     Indication: Pain
     Route: 065
  29. ETORICOXIB [Suspect]
     Active Substance: ETORICOXIB
     Indication: Pain
     Route: 065
  30. METAMIZOLE [Suspect]
     Active Substance: METAMIZOLE
     Indication: Gingival pain
     Route: 065
  31. TRAZODONE [Suspect]
     Active Substance: TRAZODONE HYDROCHLORIDE
     Indication: Pain
     Route: 065
  32. PREGABALIN [Suspect]
     Active Substance: PREGABALIN
     Indication: Product used for unknown indication
     Route: 065
  33. IPIDACRINE [Concomitant]
     Active Substance: IPIDACRINE
     Indication: Product used for unknown indication
     Route: 065
  34. IPIDACRINE [Concomitant]
     Active Substance: IPIDACRINE
  35. KETOPROFEN [Suspect]
     Active Substance: KETOPROFEN
     Indication: Toothache
     Route: 065
  36. KETOPROFEN [Suspect]
     Active Substance: KETOPROFEN
     Route: 065
  37. KETOPROFEN [Suspect]
     Active Substance: KETOPROFEN
     Route: 065
  38. OXYCODONE [Suspect]
     Active Substance: OXYCODONE
     Indication: Toothache
     Route: 065
  39. OXYCODONE [Suspect]
     Active Substance: OXYCODONE
     Indication: Analgesic therapy
     Route: 065
  40. OXYCODONE [Suspect]
     Active Substance: OXYCODONE
     Route: 065

REACTIONS (8)
  - Toothache [Recovering/Resolving]
  - Hyperaesthesia [Recovered/Resolved]
  - Central pain syndrome [Recovered/Resolved]
  - Dry mouth [Unknown]
  - Somnolence [Unknown]
  - Gingival pain [Recovering/Resolving]
  - Drug interaction [Unknown]
  - Drug ineffective [Unknown]
